FAERS Safety Report 4588968-4 (Version None)
Quarter: 2005Q1

REPORT INFORMATION
  Report Type: 
  Country: None (occurrence: None)
  Receive Date: 20050216
  Receipt Date: 20050131
  Transmission Date: 20050727
  Serious: Yes (Other)
  Sender: FDA-Public Use
  Company Number: US_0502111725

PATIENT
  Age: 15 Year
  Sex: Male

DRUGS (3)
  1. STRATTERA [Suspect]
     Indication: ATTENTION DEFICIT/HYPERACTIVITY DISORDER
  2. RISPERDAL [Concomitant]
  3. ZOLOFT [Concomitant]

REACTIONS (5)
  - AGGRESSION [None]
  - DAYDREAMING [None]
  - IMPRISONMENT [None]
  - LIBIDO INCREASED [None]
  - MEMORY IMPAIRMENT [None]
